FAERS Safety Report 24393571 (Version 1)
Quarter: 2024Q4

REPORT INFORMATION
  Report Type: Spontaneous
  Country: US (occurrence: US)
  Receive Date: 20241003
  Receipt Date: 20241003
  Transmission Date: 20250115
  Serious: No
  Sender: JOHNSON AND JOHNSON
  Company Number: US-JNJFOC-20240970479

PATIENT
  Age: 61 Year
  Sex: Male

DRUGS (2)
  1. ZYTIGA [Suspect]
     Active Substance: ABIRATERONE ACETATE
     Indication: Prostate cancer
     Route: 048
     Dates: start: 20240521
  2. ORGOVYX [Suspect]
     Active Substance: RELUGOLIX
     Indication: Prostate cancer
     Route: 048
     Dates: start: 20240522

REACTIONS (8)
  - Brain fog [Unknown]
  - Emotional disorder [Unknown]
  - COVID-19 [Unknown]
  - Fatigue [Unknown]
  - Hot flush [Unknown]
  - Loss of libido [Unknown]
  - Blood glucose increased [Unknown]
  - Insomnia [Unknown]

NARRATIVE: CASE EVENT DATE: 20240601
